FAERS Safety Report 20795559 (Version 1)
Quarter: 2022Q2

REPORT INFORMATION
  Report Type: Spontaneous
  Country: US (occurrence: None)
  Receive Date: 20220504
  Receipt Date: 20220504
  Transmission Date: 20220721
  Serious: No
  Sender: FDA-Public Use
  Company Number: None

PATIENT
  Sex: Male

DRUGS (3)
  1. ANASTROZOLE\TESTOSTERONE [Suspect]
     Active Substance: ANASTROZOLE\TESTOSTERONE
     Indication: Testicular atrophy
     Dosage: 0.5 ML TWICE A WEEK SUBCUTANEOUS?
     Route: 058
     Dates: start: 20210603
  2. ANASTROZOLE\TESTOSTERONE [Suspect]
     Active Substance: ANASTROZOLE\TESTOSTERONE
     Indication: Hormone replacement therapy
  3. Gonadorelin 0.2mg/ml [Concomitant]
     Dates: start: 20020603

REACTIONS (4)
  - Injection site swelling [None]
  - Injection site pain [None]
  - Injection site pain [None]
  - Recalled product administered [None]
